FAERS Safety Report 9256356 (Version 2)
Quarter: 2013Q3

REPORT INFORMATION
  Report Type: Spontaneous
  Country: US (occurrence: US)
  Receive Date: 20130425
  Receipt Date: 20130701
  Transmission Date: 20140515
  Serious: Yes (Hospitalization)
  Sender: FDA-Public Use
  Company Number: US-AMGEN-USASP2013028525

PATIENT
  Age: 28 Year
  Sex: Female
  Weight: 76.4 kg

DRUGS (3)
  1. PEGFILGRASTIM [Suspect]
     Indication: PROPHYLAXIS
     Dosage: 6 MG, ONE TIME DOSE
     Route: 030
     Dates: start: 20130129, end: 20130129
  2. MYLOTARG [Suspect]
     Indication: ACUTE PROMYELOCYTIC LEUKAEMIA
     Dosage: 9 MG/M2 GIVEN 16 MG ONE DOSE, CYCLIC
     Route: 042
     Dates: start: 20120504
  3. ACETAMINOPHEN [Suspect]
     Indication: PYREXIA
     Dosage: 2 DF, 325 MG 2 TABLETS EVERY 4 HOURS
     Route: 048
     Dates: start: 20130203, end: 20130205

REACTIONS (7)
  - Febrile neutropenia [Recovering/Resolving]
  - Neutrophil count decreased [Recovering/Resolving]
  - White blood cell count decreased [Recovering/Resolving]
  - Fatigue [Recovering/Resolving]
  - Myalgia [Recovering/Resolving]
  - Dyspepsia [Recovering/Resolving]
  - Chills [Recovering/Resolving]
